FAERS Safety Report 12447986 (Version 2)
Quarter: 2016Q2

REPORT INFORMATION
  Report Type: Spontaneous
  Country: IT (occurrence: IT)
  Receive Date: 20160608
  Receipt Date: 20160615
  Transmission Date: 20160815
  Serious: Yes (Other)
  Sender: FDA-Public Use
  Company Number: IT-PFIZER INC-2016290110

PATIENT
  Age: 65 Year
  Sex: Female

DRUGS (2)
  1. MADOPAR [Concomitant]
     Active Substance: BENSERAZIDE HYDROCHLORIDE\LEVODOPA
     Dosage: UNK
  2. CABASER [Suspect]
     Active Substance: CABERGOLINE
     Indication: PARKINSON^S DISEASE
     Dosage: 1 DF, DAILY
     Route: 048
     Dates: start: 20000101, end: 20080201

REACTIONS (2)
  - Mitral valve incompetence [Recovered/Resolved]
  - Tricuspid valve incompetence [Recovered/Resolved]

NARRATIVE: CASE EVENT DATE: 20070801
